FAERS Safety Report 9189196 (Version 1)
Quarter: 2013Q1

REPORT INFORMATION
  Report Type: Spontaneous
  Country: US (occurrence: None)
  Receive Date: 20130321
  Receipt Date: 20130321
  Transmission Date: 20140127
  Serious: Yes (Hospitalization)
  Sender: FDA-Public Use
  Company Number: None

PATIENT
  Age: 76 Year
  Sex: Female
  Weight: 78 kg

DRUGS (13)
  1. ROPINIROLE [Suspect]
     Indication: RESTLESS LEGS SYNDROME
     Dosage: 2 MG QHS PO
     Route: 048
  2. PRAMIPEXOLE [Suspect]
     Indication: RESTLESS LEGS SYNDROME
     Dosage: 1 MG TID PO
     Route: 048
  3. METOPROLOL [Concomitant]
  4. PREDNISONE [Concomitant]
  5. IPRATROPIUM [Concomitant]
  6. FAMOTIDINE [Concomitant]
  7. NITROGLYCERIN [Concomitant]
  8. CHOLECALCERIFEROL [Concomitant]
  9. CALCIUM + VITAMIN D [Concomitant]
  10. ANTIACID [Concomitant]
  11. ASPIRIN [Concomitant]
  12. HALOPERIDOL [Concomitant]
  13. LORAZEPAM [Concomitant]

REACTIONS (4)
  - Mental status changes [None]
  - Hallucination [None]
  - Agitation [None]
  - Delirium [None]
